FAERS Safety Report 9901292 (Version 1)
Quarter: 2014Q1

REPORT INFORMATION
  Report Type: Report from Study
  Country: DE (occurrence: DE)
  Receive Date: 20140217
  Receipt Date: 20140217
  Transmission Date: 20141002
  Serious: Yes (Hospitalization)
  Sender: FDA-Public Use
  Company Number: DE-ABBVIE-14P-062-1199261-00

PATIENT
  Age: 61 Year
  Sex: Female

DRUGS (3)
  1. HUMIRA [Suspect]
     Indication: RHEUMATOID ARTHRITIS
     Route: 058
     Dates: start: 201212
  2. PREDNISOLONE [Suspect]
     Indication: RHEUMATOID ARTHRITIS
  3. ALENDRONIC ACID (TEVANATE) [Concomitant]
     Indication: OSTEOPOROSIS

REACTIONS (3)
  - Spinal column stenosis [Recovered/Resolved]
  - Tibia fracture [Recovered/Resolved]
  - Pneumonia [Recovered/Resolved]
